FAERS Safety Report 10022926 (Version 1)
Quarter: 2014Q1

REPORT INFORMATION
  Report Type: Spontaneous
  Country: US (occurrence: US)
  Receive Date: 20140319
  Receipt Date: 20140319
  Transmission Date: 20141002
  Serious: No
  Sender: FDA-Public Use
  Company Number: US-SANOFI-AVENTIS-2013SA083406

PATIENT
  Age: 66 Year
  Sex: Female
  Weight: 70.3 kg

DRUGS (2)
  1. TRIAMCINOLONE ACETONIDE - WINTHROP [Suspect]
     Indication: HYPERSENSITIVITY
     Dosage: DOSAGE: 1 PUFF IEN DOSE:1 PUFF(S)
     Route: 065
     Dates: start: 2007, end: 20130812
  2. TRIAMCINOLONE ACETONIDE - WINTHROP [Suspect]
     Indication: HYPERSENSITIVITY
     Route: 065
     Dates: start: 20130816

REACTIONS (5)
  - Headache [Recovered/Resolved]
  - Eye pruritus [Recovered/Resolved]
  - Rhinorrhoea [Recovered/Resolved]
  - Sinus congestion [Unknown]
  - Nasal congestion [Unknown]
